FAERS Safety Report 24794235 (Version 1)
Quarter: 2024Q4

REPORT INFORMATION
  Report Type: Spontaneous
  Country: US (occurrence: None)
  Receive Date: 20241230
  Receipt Date: 20241230
  Transmission Date: 20250115
  Serious: Yes (Congenital Anomaly, Other)
  Sender: Public
  Company Number: None

PATIENT
  Sex: Female
  Weight: 2.96 kg

DRUGS (1)
  1. NIROGACESTAT [Suspect]
     Active Substance: NIROGACESTAT
     Indication: Desmoid tumour
     Dosage: FREQUENCY : TWICE A DAY;?
     Route: 048
     Dates: start: 20241119

REACTIONS (2)
  - Abdominal pain [None]
  - Exposure during pregnancy [None]

NARRATIVE: CASE EVENT DATE: 20241220
